FAERS Safety Report 24061508 (Version 2)
Quarter: 2024Q3

REPORT INFORMATION
  Report Type: Report from Study
  Country: US (occurrence: US)
  Receive Date: 20240708
  Receipt Date: 20240709
  Transmission Date: 20241017
  Serious: Yes (Other)
  Sender: BAYER
  Company Number: US-BAYER-2024A096611

PATIENT
  Age: 59 Year
  Sex: Male

DRUGS (6)
  1. VITRAKVI [Suspect]
     Active Substance: LAROTRECTINIB
     Indication: Neoplasm
     Dosage: 100 MG, BID
     Route: 048
     Dates: start: 20240420
  2. VITRAKVI [Suspect]
     Active Substance: LAROTRECTINIB
     Indication: Malignant connective tissue neoplasm
  3. VITRAKVI [Suspect]
     Active Substance: LAROTRECTINIB
     Indication: Soft tissue sarcoma
  4. TADALAFIL [Concomitant]
     Active Substance: TADALAFIL
     Dosage: UNK
  5. TAMSULOSIN [Concomitant]
     Active Substance: TAMSULOSIN
     Indication: Prostatic disorder
     Dosage: UNK
  6. XARELTO [Concomitant]
     Active Substance: RIVAROXABAN
     Dosage: UNK

REACTIONS (2)
  - Blood creatinine increased [Unknown]
  - Disease progression [Not Recovered/Not Resolved]
